FAERS Safety Report 22355210 (Version 3)
Quarter: 2023Q4

REPORT INFORMATION
  Report Type: Spontaneous
  Country: US (occurrence: US)
  Receive Date: 20230523
  Receipt Date: 20231026
  Transmission Date: 20240110
  Serious: No
  Sender: FDA-Public Use
  Company Number: US-BRISTOL-MYERS SQUIBB COMPANY-2023-071892

PATIENT
  Age: 53 Year
  Sex: Male

DRUGS (1)
  1. POMALYST [Suspect]
     Active Substance: POMALIDOMIDE
     Indication: Product used for unknown indication
     Dosage: FREQ: ON MON/WED/FRI
     Route: 048

REACTIONS (7)
  - Constipation [Unknown]
  - Fatigue [Unknown]
  - Nerve compression [Unknown]
  - Neck pain [Unknown]
  - Muscular weakness [Unknown]
  - Pain in extremity [Unknown]
  - Off label use [Unknown]

NARRATIVE: CASE EVENT DATE: 20230823
